FAERS Safety Report 16568769 (Version 1)
Quarter: 2019Q3

REPORT INFORMATION
  Report Type: Spontaneous
  Country: ES (occurrence: ES)
  Receive Date: 20190713
  Receipt Date: 20190713
  Transmission Date: 20191004
  Serious: Yes (Life-Threatening)
  Sender: FDA-Public Use
  Company Number: ES-TEVA-2019-ES-1075947

PATIENT
  Age: 84 Year
  Sex: Male

DRUGS (14)
  1. RAMIPRIL 2,5 MG COMPRIMIDO [Concomitant]
     Active Substance: RAMIPRIL
  2. FUROSEMIDA (1615A) [Concomitant]
     Active Substance: FUROSEMIDE
  3. PANTOPRAZOL (7275A) [Suspect]
     Active Substance: PANTOPRAZOLE
     Indication: HYPERLIPIDAEMIA
     Dosage: 40MG
     Route: 048
     Dates: start: 20190530, end: 20190627
  4. JANUMET 50 MG/1.000 MG COMPRIMIDOS RECUBIERTOS CON PELICULA [Concomitant]
  5. BISOPROLOL 2,5 MG COMPRIMIDO [Concomitant]
     Active Substance: BISOPROLOL
  6. CIANOCOBALAMINA (56A) [Concomitant]
  7. NITROGLICERINA (1037A) [Concomitant]
  8. CLOPIDOGREL [Concomitant]
     Active Substance: CLOPIDOGREL BISULFATE
  9. ACIDO FOLICO [Concomitant]
     Active Substance: CYANOCOBALAMIN\FOLIC ACID\PYRIDOXINE HYDROCHLORIDE
  10. LEVETIRACETAM 500 MG COMPRIMIDO [Concomitant]
  11. ALDACTONE [Concomitant]
     Active Substance: SPIRONOLACTONE
  12. ADIRO 100 MG COMPRIMIDOS GASTRORRESISTENTES EFG [Concomitant]
     Active Substance: ASPIRIN
  13. ATORVASTATINA 40 MG COMPRIMIDO [Concomitant]
  14. EPANUTIN 100 MG CAPSULAS DURAS , 100 CAPSULAS [Concomitant]

REACTIONS (1)
  - Hypomagnesaemia [Unknown]

NARRATIVE: CASE EVENT DATE: 20190626
